FAERS Safety Report 16308309 (Version 1)
Quarter: 2019Q2

REPORT INFORMATION
  Report Type: Spontaneous
  Country: JP (occurrence: JP)
  Receive Date: 20190514
  Receipt Date: 20190514
  Transmission Date: 20190711
  Serious: Yes (Life-Threatening)
  Sender: FDA-Public Use
  Company Number: JP-PFIZER INC-2019203735

PATIENT
  Age: 31 Year
  Sex: Male
  Weight: 70 kg

DRUGS (6)
  1. POPSCAINE [Suspect]
     Active Substance: LEVOBUPIVACAINE HYDROCHLORIDE
     Indication: LOCAL ANAESTHESIA
     Dosage: 10 ML, 1X/DAY
     Route: 008
     Dates: start: 20190404, end: 20190404
  2. PRECEDEX [Suspect]
     Active Substance: DEXMEDETOMIDINE HYDROCHLORIDE
     Indication: SEDATION
     Dosage: 6 MCG/KG PER HOUR FOR 10 MIN
     Route: 042
     Dates: start: 20190404
  3. PRECEDEX [Suspect]
     Active Substance: DEXMEDETOMIDINE HYDROCHLORIDE
     Dosage: 0.3 MCG/KG PER HOUR FOR 40 MIN
     Route: 042
     Dates: start: 20190404, end: 20190404
  4. CEFAZOLIN SODIUM. [Concomitant]
     Active Substance: CEFAZOLIN SODIUM
     Dosage: 1 G, 1X/DAY
     Route: 065
     Dates: start: 20190404, end: 20190404
  5. MARCAIN SPINAL 0.5% HYPERBARIC [Suspect]
     Active Substance: BUPIVACAINE HYDROCHLORIDE
     Indication: LOCAL ANAESTHESIA
     Dosage: 3 ML, 1X/DAY
     Route: 037
     Dates: start: 20190404, end: 20190404
  6. NORMAL SALINE [Concomitant]
     Active Substance: SODIUM CHLORIDE
     Dosage: 100 ML, 1X/DAY
     Route: 065
     Dates: start: 20190404, end: 20190404

REACTIONS (1)
  - Bradycardia [Recovered/Resolved]

NARRATIVE: CASE EVENT DATE: 20190404
